FAERS Safety Report 4908626-3 (Version None)
Quarter: 2006Q1

REPORT INFORMATION
  Report Type: 
  Country: None (occurrence: None)
  Receive Date: 20060210
  Receipt Date: 20050921
  Transmission Date: 20060701
  Serious: No
  Sender: FDA-Public Use
  Company Number: US-GLAXOSMITHKLINE-A0575211A

PATIENT
  Age: 43 Year
  Sex: Female

DRUGS (13)
  1. PAXIL CR [Suspect]
     Dosage: 25MG PER DAY
     Route: 048
     Dates: start: 20050828
  2. NORFLEX [Concomitant]
  3. LIPITOR [Concomitant]
  4. TRICOR [Concomitant]
  5. KLONOPIN [Concomitant]
  6. AMIODARONE [Concomitant]
  7. LOPRESSOR [Concomitant]
  8. ASPIRIN [Concomitant]
  9. LASIX [Concomitant]
  10. METOPROLOL [Concomitant]
  11. POTASSIUM [Concomitant]
  12. MORPHINE [Concomitant]
  13. DILAUDID [Concomitant]

REACTIONS (1)
  - HYPERHIDROSIS [None]
